FAERS Safety Report 7632313-4 (Version None)
Quarter: 2011Q3

REPORT INFORMATION
  Report Type: 
  Country: None (occurrence: None)
  Receive Date: 20110725
  Receipt Date: 20100728
  Transmission Date: 20111222
  Serious: No
  Sender: FDA-Public Use
  Company Number: US-BRISTOL-MYERS SQUIBB COMPANY-15213416

PATIENT
  Sex: Male

DRUGS (3)
  1. CRANBERRY JUICE [Suspect]
  2. COUMADIN [Suspect]
     Indication: THROMBOSIS
  3. LOVENOX [Concomitant]
     Indication: THROMBOSIS

REACTIONS (1)
  - INTERNATIONAL NORMALISED RATIO FLUCTUATION [None]
